FAERS Safety Report 19025176 (Version 1)
Quarter: 2021Q1

REPORT INFORMATION
  Report Type: Spontaneous
  Country: US (occurrence: US)
  Receive Date: 20210317
  Receipt Date: 20210317
  Transmission Date: 20210420
  Serious: No
  Sender: FDA-Public Use
  Company Number: None

PATIENT
  Age: 31 Year
  Sex: Female
  Weight: 86.4 kg

DRUGS (5)
  1. CYMBALTA [Concomitant]
     Active Substance: DULOXETINE HYDROCHLORIDE
  2. MIRTAZAPINE 15 MG [Suspect]
     Active Substance: MIRTAZAPINE
     Indication: DEPRESSION
     Dates: start: 20200820, end: 20210317
  3. ZYPREXA [Concomitant]
     Active Substance: OLANZAPINE
  4. MIRTAZAPINE 15 MG [Suspect]
     Active Substance: MIRTAZAPINE
     Indication: INSOMNIA
     Dates: start: 20200820, end: 20210317
  5. VALACYCLOVIR [Concomitant]
     Active Substance: VALACYCLOVIR HYDROCHLORIDE

REACTIONS (5)
  - Initial insomnia [None]
  - Night sweats [None]
  - Hyperhidrosis [None]
  - Weight increased [None]
  - Somnambulism [None]

NARRATIVE: CASE EVENT DATE: 20210215
